FAERS Safety Report 22109839 (Version 6)
Quarter: 2023Q2

REPORT INFORMATION
  Report Type: Report from Study
  Country: US (occurrence: US)
  Receive Date: 20230317
  Receipt Date: 20230619
  Transmission Date: 20230722
  Serious: No
  Sender: FDA-Public Use
  Company Number: US-002147023-NVSC2023US057051

PATIENT
  Sex: Female
  Weight: 107.95 kg

DRUGS (4)
  1. COSENTYX [Suspect]
     Active Substance: SECUKINUMAB
     Indication: Arthritis
     Dosage: UNK, QW (DOSE WAS TAKEN 1 PER WEEK FOR 4 WEEKS )
     Route: 042
  2. COSENTYX [Suspect]
     Active Substance: SECUKINUMAB
     Indication: Psoriasis
     Dosage: UNK UNK, QMO
     Route: 042
  3. COSENTYX [Suspect]
     Active Substance: SECUKINUMAB
     Indication: Type 2 diabetes mellitus
  4. COSENTYX [Suspect]
     Active Substance: SECUKINUMAB
     Indication: Musculoskeletal discomfort

REACTIONS (5)
  - Arthritis [Unknown]
  - Psoriasis [Unknown]
  - Product distribution issue [Unknown]
  - Incorrect route of product administration [Unknown]
  - Product use in unapproved indication [Unknown]
